FAERS Safety Report 20102981 (Version 1)
Quarter: 2021Q4

REPORT INFORMATION
  Report Type: Spontaneous
  Country: US (occurrence: US)
  Receive Date: 20211123
  Receipt Date: 20211123
  Transmission Date: 20220303
  Serious: Yes (Hospitalization, Other)
  Sender: FDA-Public Use
  Company Number: US-VALIDUS PHARMACEUTICALS LLC-US-VDP-2021-014571

PATIENT

DRUGS (1)
  1. CALCITRIOL [Suspect]
     Active Substance: CALCITRIOL
     Indication: Vitamin D deficiency
     Dosage: 210000 IU, QD
     Route: 065

REACTIONS (4)
  - Acute kidney injury [Unknown]
  - Renal tubular necrosis [Unknown]
  - Hypervitaminosis D [Unknown]
  - Hypercalcaemia [Unknown]
